FAERS Safety Report 24354379 (Version 1)
Quarter: 2024Q3

REPORT INFORMATION
  Report Type: Spontaneous
  Country: RO (occurrence: RO)
  Receive Date: 20240923
  Receipt Date: 20240923
  Transmission Date: 20241017
  Serious: Yes (Other)
  Sender: NOVARTIS
  Company Number: RO-002147023-NVSC2024RO187314

PATIENT
  Age: 67 Year
  Sex: Male

DRUGS (8)
  1. SCEMBLIX [Suspect]
     Active Substance: ASCIMINIB HYDROCHLORIDE
     Indication: Chronic myeloid leukaemia
     Dosage: 40 MG, QD (X2)
     Route: 065
     Dates: start: 202405, end: 202409
  2. SCEMBLIX [Suspect]
     Active Substance: ASCIMINIB HYDROCHLORIDE
     Dosage: 40 MG, QD
     Route: 065
     Dates: start: 202409
  3. TASIGNA [Suspect]
     Active Substance: NILOTINIB
     Indication: Chronic myeloid leukaemia
     Dosage: 200 MG, QD (X2)
     Route: 065
     Dates: start: 202209, end: 202305
  4. TASIGNA [Suspect]
     Active Substance: NILOTINIB
     Dosage: 200 MG, QD (X2)
     Route: 065
     Dates: end: 202405
  5. NIVOLUMAB [Concomitant]
     Active Substance: NIVOLUMAB
     Indication: Chronic myeloid leukaemia
     Dosage: 480 MG (AT 3 WEEKS)
     Route: 065
     Dates: start: 202111
  6. EVEROLIMUS [Concomitant]
     Active Substance: EVEROLIMUS
     Indication: Chronic myeloid leukaemia
     Dosage: 10 MG, QD
     Route: 065
     Dates: start: 202311, end: 202409
  7. EVEROLIMUS [Concomitant]
     Active Substance: EVEROLIMUS
     Dosage: 5 MG, QD
     Route: 065
     Dates: start: 202409
  8. AMLODIPINE BESYLATE\INDAPAMIDE\PERINDOPRIL ARGININE [Concomitant]
     Active Substance: AMLODIPINE BESYLATE\INDAPAMIDE\PERINDOPRIL ARGININE
     Indication: Hypertension
     Dosage: 1 DOSAGE FORM, QD
     Route: 065

REACTIONS (6)
  - Metastases to adrenals [Unknown]
  - Spinal stenosis [Unknown]
  - Osteolysis [Unknown]
  - Musculoskeletal pain [Unknown]
  - Spinal pain [Unknown]
  - Treatment failure [Unknown]

NARRATIVE: CASE EVENT DATE: 20230501
